FAERS Safety Report 4650051-7 (Version None)
Quarter: 2005Q2

REPORT INFORMATION
  Report Type: 
  Country: None (occurrence: None)
  Receive Date: 20050428
  Receipt Date: 20050419
  Transmission Date: 20051028
  Serious: Yes (Hospitalization)
  Sender: FDA-Public Use
  Company Number: LTI2005A00104

PATIENT
  Age: 67 Year
  Sex: Male

DRUGS (2)
  1. ACTOS [Suspect]
     Indication: DIABETES MELLITUS NON-INSULIN-DEPENDENT
     Dosage: 1 TAB. (1 TAB., 1 IN 1 D), ORAL; DAYS
     Route: 048
     Dates: start: 20050110, end: 20050308
  2. GLUCOPHAGE [Concomitant]

REACTIONS (3)
  - ANOREXIA [None]
  - ASTHENIA [None]
  - WEIGHT DECREASED [None]
